FAERS Safety Report 5885829-5 (Version None)
Quarter: 2008Q3

REPORT INFORMATION
  Report Type: 
  Country: None (occurrence: None)
  Receive Date: 20080917
  Receipt Date: 20080915
  Transmission Date: 20090109
  Serious: Yes (Other)
  Sender: FDA-Public Use
  Company Number: US-BRISTOL-MYERS SQUIBB COMPANY-14335269

PATIENT
  Age: 51 Year
  Sex: Female

DRUGS (2)
  1. TRIAMCINOLONE ACETONIDE [Suspect]
     Indication: CARPAL TUNNEL SYNDROME
     Dosage: TRIAMCINOLONE 40MG/ML. INJECTED INTO THE CARPAL TUNNEL
  2. LIDOCAINE [Suspect]
     Indication: CARPAL TUNNEL SYNDROME
     Dosage: LIDOCAINE 1%

REACTIONS (3)
  - ECCHYMOSIS [None]
  - PERIPHERAL EMBOLISM [None]
  - PERIPHERAL ISCHAEMIA [None]
